FAERS Safety Report 14739971 (Version 1)
Quarter: 2018Q2

REPORT INFORMATION
  Report Type: Spontaneous
  Country: US (occurrence: US)
  Receive Date: 20180410
  Receipt Date: 20180410
  Transmission Date: 20180711
  Serious: No
  Sender: FDA-Public Use
  Company Number: US-HORIZON-PEN-0233-2018

PATIENT
  Sex: Female

DRUGS (1)
  1. PENNSAID [Suspect]
     Active Substance: DICLOFENAC SODIUM
     Indication: TENDONITIS
     Dosage: ONCE IN THE MORNING, ONE IN THE EVENING AND THEN REDUCED

REACTIONS (4)
  - Dry skin [Unknown]
  - Application site pruritus [Unknown]
  - Incorrect dose administered [Unknown]
  - Off label use [Unknown]
